FAERS Safety Report 6598627-4 (Version None)
Quarter: 2010Q1

REPORT INFORMATION
  Report Type: 
  Country: None (occurrence: None)
  Receive Date: 20100224
  Receipt Date: 20100219
  Transmission Date: 20100710
  Serious: Yes (Hospitalization)
  Sender: FDA-Public Use
  Company Number: US-BAYER-201014491NA

PATIENT
  Age: 36 Year
  Sex: Male

DRUGS (3)
  1. BETASERON [Suspect]
     Indication: MULTIPLE SCLEROSIS
     Dosage: TOTAL DAILY DOSE: 0.3 MG
     Route: 058
     Dates: start: 20040601, end: 20100201
  2. FLEXERIL [Concomitant]
     Route: 065
  3. EFFEXOR [Concomitant]
     Route: 065

REACTIONS (3)
  - MULTIPLE SCLEROSIS [None]
  - MUSCLE SPASMS [None]
  - PAIN [None]
